FAERS Safety Report 21083387 (Version 1)
Quarter: 2022Q3

REPORT INFORMATION
  Report Type: Spontaneous
  Country: BE (occurrence: BE)
  Receive Date: 20220714
  Receipt Date: 20220714
  Transmission Date: 20221027
  Serious: Yes (Life-Threatening, Hospitalization, Other)
  Sender: FDA-Public Use
  Company Number: BE-BRISTOL-MYERS SQUIBB COMPANY-2022-074128

PATIENT
  Age: 59 Year
  Sex: Male

DRUGS (2)
  1. NIVOLUMAB [Suspect]
     Active Substance: NIVOLUMAB
     Indication: Malignant melanoma
     Route: 065
     Dates: start: 20201002, end: 20210212
  2. IPILIMUMAB [Suspect]
     Active Substance: IPILIMUMAB
     Indication: Malignant melanoma
     Route: 065
     Dates: start: 20201002, end: 20210212

REACTIONS (7)
  - Ketoacidosis [Unknown]
  - Diabetes mellitus [Recovered/Resolved]
  - Hypothyroidism [Recovered/Resolved]
  - Restless legs syndrome [Recovered/Resolved]
  - Tremor [Recovered/Resolved]
  - Disorientation [Recovered/Resolved]
  - Neurological symptom [Recovered/Resolved]

NARRATIVE: CASE EVENT DATE: 20210208
